FAERS Safety Report 6332548-7 (Version None)
Quarter: 2009Q3

REPORT INFORMATION
  Report Type: 
  Country: None (occurrence: None)
  Receive Date: 20090828
  Receipt Date: 20090825
  Transmission Date: 20100115
  Serious: Yes (Disabling)
  Sender: FDA-Public Use
  Company Number: CA-JNJFOC-20090608530

PATIENT
  Sex: Female

DRUGS (3)
  1. MICRONOR [Suspect]
     Indication: DRUG USE FOR UNKNOWN INDICATION
     Route: 065
  2. CALCIUM [Concomitant]
  3. MAGNESIUM [Concomitant]

REACTIONS (4)
  - ABDOMINAL DISTENSION [None]
  - ACNE [None]
  - BACK PAIN [None]
  - DYSPEPSIA [None]
